FAERS Safety Report 21778881 (Version 1)
Quarter: 2022Q4

REPORT INFORMATION
  Report Type: Report from Study
  Country: US (occurrence: US)
  Receive Date: 20221226
  Receipt Date: 20221226
  Transmission Date: 20230113
  Serious: No
  Sender: FDA-Public Use
  Company Number: US-ABBVIE-4209075

PATIENT
  Sex: Female
  Weight: 71.667 kg

DRUGS (1)
  1. HUMIRA [Suspect]
     Active Substance: ADALIMUMAB
     Indication: Colitis ulcerative
     Dosage: CITRATE FREE?FORM STRENGTH: 40 MILLIGRAM
     Route: 058
     Dates: end: 20221024

REACTIONS (4)
  - Liver disorder [Unknown]
  - Drug ineffective [Recovering/Resolving]
  - Gastrointestinal bacterial infection [Not Recovered/Not Resolved]
  - Bacterial test positive [Not Recovered/Not Resolved]
